FAERS Safety Report 4315623-8 (Version None)
Quarter: 2004Q1

REPORT INFORMATION
  Report Type: 
  Country: None (occurrence: None)
  Receive Date: 20040311
  Receipt Date: 20040311
  Transmission Date: 20041129
  Serious: Yes (Hospitalization)
  Sender: FDA-Public Use
  Company Number: FR-GLAXOSMITHKLINE-A0502209A

PATIENT
  Sex: Female

DRUGS (1)
  1. NAVELBINE [Suspect]
     Route: 042

REACTIONS (2)
  - INTERCOSTAL NEURALGIA [None]
  - PLEURAL DISORDER [None]
